FAERS Safety Report 16732037 (Version 2)
Quarter: 2019Q3

REPORT INFORMATION
  Report Type: Spontaneous
  Country: US (occurrence: US)
  Receive Date: 20190822
  Receipt Date: 20190926
  Transmission Date: 20191005
  Serious: Yes (Other)
  Sender: FDA-Public Use
  Company Number: US-SHIRE-US201926925

PATIENT
  Age: 52 Year
  Sex: Female
  Weight: 54.42 kg

DRUGS (1)
  1. GAMMAGARD LIQUID [Suspect]
     Active Substance: HUMAN IMMUNOGLOBULIN G
     Indication: PRIMARY IMMUNODEFICIENCY SYNDROME
     Dosage: UNK
     Route: 042
     Dates: start: 2012

REACTIONS (3)
  - Infusion related reaction [Recovered/Resolved]
  - Anaphylactoid reaction [Recovered/Resolved]
  - Noninfective encephalitis [Recovered/Resolved]

NARRATIVE: CASE EVENT DATE: 201204
